FAERS Safety Report 8565148-9 (Version None)
Quarter: 2012Q3

REPORT INFORMATION
  Report Type: 
  Country: None (occurrence: None)
  Receive Date: 20120724
  Receipt Date: 20120709
  Transmission Date: 20120928
  Serious: Yes (Disabling, Other)
  Sender: FDA-Public Use
  Company Number: ENTC2012-0219

PATIENT
  Age: 58 Year
  Sex: Male

DRUGS (3)
  1. STALEVO 50 [Suspect]
     Indication: PARKINSON'S DISEASE
     Dosage: FIVE TABLETS PER DAY, STRENGTH: 150/37.5/200MG, ORAL
     Route: 048
     Dates: start: 20050101
  2. MIRAPEX [Concomitant]
  3. TRAZODONE HCL [Concomitant]

REACTIONS (7)
  - GAIT DISTURBANCE [None]
  - AKINESIA [None]
  - PRODUCT QUALITY ISSUE [None]
  - MUSCULOSKELETAL STIFFNESS [None]
  - PRODUCT LABEL ISSUE [None]
  - PRODUCT PACKAGING ISSUE [None]
  - HYPERKINESIA [None]
